FAERS Safety Report 22646298 (Version 1)
Quarter: 2023Q2

REPORT INFORMATION
  Report Type: Spontaneous
  Country: CN (occurrence: CN)
  Receive Date: 20230627
  Receipt Date: 20230627
  Transmission Date: 20230721
  Serious: Yes (Life-Threatening, Other)
  Sender: FDA-Public Use
  Company Number: CN-BRISTOL-MYERS SQUIBB COMPANY-2023-090297

PATIENT
  Age: 73 Year
  Sex: Female

DRUGS (4)
  1. VIDAZA [Suspect]
     Active Substance: AZACITIDINE
     Indication: Myelodysplastic syndrome
     Route: 041
     Dates: start: 20230607, end: 20230607
  2. SELINEXOR [Suspect]
     Active Substance: SELINEXOR
     Indication: Myelodysplastic syndrome
     Dates: start: 20230607, end: 20230607
  3. BORTEZOMIB [Suspect]
     Active Substance: BORTEZOMIB
     Indication: Myelodysplastic syndrome
     Dates: start: 20230607, end: 20230607
  4. BORTEZOMIB [Suspect]
     Active Substance: BORTEZOMIB
     Dates: start: 20230610, end: 20230610

REACTIONS (1)
  - Myelosuppression [Recovering/Resolving]

NARRATIVE: CASE EVENT DATE: 20230610
